FAERS Safety Report 23206839 (Version 1)
Quarter: 2023Q4

REPORT INFORMATION
  Report Type: Other
  Country: US (occurrence: US)
  Receive Date: 20231120
  Receipt Date: 20231120
  Transmission Date: 20240110
  Serious: No
  Sender: FDA-Public Use
  Company Number: US-UROVANT SCIENCES GMBH-202308-URV-001576

PATIENT
  Sex: Female

DRUGS (3)
  1. GEMTESA [Suspect]
     Active Substance: VIBEGRON
     Indication: Hypertonic bladder
     Dosage: UNK
     Route: 065
     Dates: start: 202302
  2. ESTRADIOL [Concomitant]
     Active Substance: ESTRADIOL
     Indication: Infection prophylaxis
     Dosage: UNK
     Route: 065
  3. ESTRADIOL [Concomitant]
     Active Substance: ESTRADIOL
     Indication: Membrane stabilising effect

REACTIONS (1)
  - Incontinence [Unknown]
